FAERS Safety Report 23384081 (Version 1)
Quarter: 2024Q1

REPORT INFORMATION
  Report Type: Spontaneous
  Country: US (occurrence: None)
  Receive Date: 20240109
  Receipt Date: 20240109
  Transmission Date: 20240410
  Serious: Yes (Other)
  Sender: FDA-Public Use
  Company Number: None

PATIENT
  Age: 48 Year
  Sex: Female
  Weight: 62.1 kg

DRUGS (4)
  1. MIRALAX [Suspect]
     Active Substance: POLYETHYLENE GLYCOL 3350
     Indication: Colonoscopy
     Dates: start: 20240101, end: 20240102
  2. DULCOLAX SIMULANT LAXATIVE [Suspect]
     Active Substance: BISACODYL
  3. FLONASE [Concomitant]
     Active Substance: FLUTICASONE PROPIONATE
  4. DAILY MULT IVITAMINS [Concomitant]

REACTIONS (9)
  - Headache [None]
  - Dizziness [None]
  - Nausea [None]
  - Hypoaesthesia oral [None]
  - Paraesthesia oral [None]
  - Palpitations [None]
  - Electrolyte imbalance [None]
  - Blood sodium decreased [None]
  - Muscle spasms [None]

NARRATIVE: CASE EVENT DATE: 20240102
